FAERS Safety Report 15023192 (Version 1)
Quarter: 2018Q2

REPORT INFORMATION
  Report Type: Spontaneous
  Country: BR (occurrence: BR)
  Receive Date: 20180618
  Receipt Date: 20180618
  Transmission Date: 20180711
  Serious: Yes (Other)
  Sender: FDA-Public Use
  Company Number: BR-FRESENIUS KABI-FK201806947

PATIENT
  Age: 67 Year
  Sex: Female

DRUGS (3)
  1. FARMORUBICINA [Concomitant]
     Active Substance: EPIRUBICIN HYDROCHLORIDE
     Indication: SARCOMA METASTATIC
     Route: 065
     Dates: start: 20180423
  2. MESNA (MANUFACTURER UNKNOWN) [Suspect]
     Active Substance: MESNA
     Indication: SARCOMA METASTATIC
     Route: 065
     Dates: start: 20180423
  3. IFOSFAMIDE. [Concomitant]
     Active Substance: IFOSFAMIDE
     Indication: SARCOMA METASTATIC
     Route: 065
     Dates: start: 20180423

REACTIONS (2)
  - Leukopenia [Unknown]
  - Neutropenia [Unknown]

NARRATIVE: CASE EVENT DATE: 20180508
